FAERS Safety Report 6913901-7 (Version None)
Quarter: 2010Q3

REPORT INFORMATION
  Report Type: 
  Country: None (occurrence: None)
  Receive Date: 20100809
  Receipt Date: 20100802
  Transmission Date: 20110219
  Serious: Yes (Hospitalization)
  Sender: FDA-Public Use
  Company Number: US-GILEAD-2010-0030803

PATIENT
  Sex: Female
  Weight: 67.737 kg

DRUGS (6)
  1. LETAIRIS [Suspect]
     Indication: PULMONARY ARTERIAL HYPERTENSION
     Route: 048
     Dates: start: 20090422
  2. REMODULIN [Concomitant]
  3. FLONASE [Concomitant]
  4. TOPAMAX [Concomitant]
  5. ORTHO TRI CYCLENE [Concomitant]
  6. FOLIC ACID [Concomitant]

REACTIONS (3)
  - CHEST DISCOMFORT [None]
  - DYSPNOEA [None]
  - FATIGUE [None]
